FAERS Safety Report 12879461 (Version 1)
Quarter: 2016Q4

REPORT INFORMATION
  Report Type: Spontaneous
  Country: FI (occurrence: FI)
  Receive Date: 20161025
  Receipt Date: 20161025
  Transmission Date: 20170207
  Serious: Yes (Other)
  Sender: FDA-Public Use
  Company Number: FI-ROCHE-1842907

PATIENT
  Sex: Female

DRUGS (5)
  1. PERTUZUMAB [Suspect]
     Active Substance: PERTUZUMAB
     Indication: BREAST CANCER METASTATIC
     Dosage: THERAPY WITH TRASTUZUMAB, PERTUZUMAB AND DOCETAXEL
     Route: 065
     Dates: start: 2013
  2. PERTUZUMAB [Suspect]
     Active Substance: PERTUZUMAB
     Dosage: THERAPY WITH TRASTUZUMAB AND PERTUZUMAB
     Route: 065
  3. TRASTUZUMAB [Suspect]
     Active Substance: TRASTUZUMAB
     Indication: BREAST CANCER METASTATIC
     Dosage: THERAPY WITH TRASTUZUMAB, PERTUZUMAB AND DOCETAXEL
     Route: 065
     Dates: start: 2013
  4. TRASTUZUMAB [Suspect]
     Active Substance: TRASTUZUMAB
     Dosage: THERAPY WITH TRASTUZUMAB AND PERTUZUMAB
     Route: 065
  5. DOCETAXEL. [Suspect]
     Active Substance: DOCETAXEL
     Indication: BREAST CANCER METASTATIC
     Dosage: TOTALLY 6 CYCLES
     Route: 065
     Dates: start: 2013

REACTIONS (3)
  - Wheelchair user [Recovered/Resolved]
  - Diabetes mellitus [Unknown]
  - Neuropathy peripheral [Unknown]
